FAERS Safety Report 18961703 (Version 1)
Quarter: 2021Q1

REPORT INFORMATION
  Report Type: Spontaneous
  Country: CA (occurrence: CA)
  Receive Date: 20210302
  Receipt Date: 20210302
  Transmission Date: 20210420
  Serious: Yes (Other)
  Sender: FDA-Public Use
  Company Number: CA-JNJFOC-20210244533

PATIENT
  Age: 55 Year
  Sex: Female
  Weight: 62 kg

DRUGS (2)
  1. XARELTO [Concomitant]
     Active Substance: RIVAROXABAN
  2. INFLIXIMAB, RECOMBINANT [Suspect]
     Active Substance: INFLIXIMAB
     Indication: CROHN^S DISEASE
     Route: 042

REACTIONS (10)
  - Pallor [Unknown]
  - Pulse abnormal [Unknown]
  - Change of bowel habit [Unknown]
  - Dysstasia [Unknown]
  - Blood pressure immeasurable [Unknown]
  - Infrequent bowel movements [Unknown]
  - Malnutrition [Unknown]
  - Constipation [Unknown]
  - Dysphonia [Unknown]
  - Skin lesion [Unknown]
